FAERS Safety Report 11288857 (Version 1)
Quarter: 2015Q3

REPORT INFORMATION
  Report Type: Spontaneous
  Country: US (occurrence: US)
  Receive Date: 20150721
  Receipt Date: 20150721
  Transmission Date: 20151125
  Serious: No
  Sender: FDA-Public Use
  Company Number: US-UNITED THERAPEUTICS-UNT-2015-004375

PATIENT
  Age: 56 Year
  Sex: Male
  Weight: 74.97 kg

DRUGS (3)
  1. TYVASO [Suspect]
     Active Substance: TREPROSTINIL
     Indication: PULMONARY ARTERIAL HYPERTENSION
     Dosage: 18-54 MICROGRAMS, QID
     Dates: start: 20150410
  2. COUMADIN [Concomitant]
     Active Substance: WARFARIN SODIUM
     Indication: PRODUCT USED FOR UNKNOWN INDICATION
  3. REMODULIN [Suspect]
     Active Substance: TREPROSTINIL
     Indication: PULMONARY ARTERIAL HYPERTENSION
     Dosage: 0.008 ?G/KG/MIN, CONTINUING
     Route: 041
     Dates: start: 20150304

REACTIONS (7)
  - Headache [Not Recovered/Not Resolved]
  - Chills [Unknown]
  - Flushing [Recovered/Resolved]
  - Cough [Recovered/Resolved]
  - Sinus headache [None]
  - Nausea [Not Recovered/Not Resolved]
  - Insomnia [None]

NARRATIVE: CASE EVENT DATE: 201504
